FAERS Safety Report 24961822 (Version 1)
Quarter: 2025Q1

REPORT INFORMATION
  Report Type: Spontaneous
  Country: US (occurrence: US)
  Receive Date: 20250212
  Receipt Date: 20250212
  Transmission Date: 20250408
  Serious: Yes (Other)
  Sender: BRISTOL-MYERS SQUIBB COMPANY
  Company Number: US-BRISTOL-MYERS SQUIBB COMPANY-2025-019571

PATIENT
  Age: 68 Year
  Sex: Male
  Weight: 123 kg

DRUGS (2)
  1. ELIQUIS [Suspect]
     Active Substance: APIXABAN
     Indication: Product used for unknown indication
     Route: 048
  2. ELIQUIS [Suspect]
     Active Substance: APIXABAN
     Dosage: TAKE 1 TABLET (5 MG TOTAL) BY MOUTH IN TIME MORNING AND 1 TABLET (5 MG TOTAL) BEFORE BEDTIME
     Route: 048

REACTIONS (2)
  - Breast cancer male [Unknown]
  - Atrial fibrillation [Unknown]
